FAERS Safety Report 12368245 (Version 2)
Quarter: 2016Q2

REPORT INFORMATION
  Report Type: Report from Study
  Country: US (occurrence: US)
  Receive Date: 20160513
  Receipt Date: 20160627
  Transmission Date: 20160815
  Serious: Yes (Hospitalization)
  Sender: FDA-Public Use
  Company Number: US-EXELIXIS-CABO-16006352

PATIENT
  Sex: Female

DRUGS (2)
  1. COMETRIQ [Suspect]
     Active Substance: CABOZANTINIB S-MALATE
     Indication: METASTASES TO BONE
  2. COMETRIQ [Suspect]
     Active Substance: CABOZANTINIB S-MALATE
     Indication: METASTASES TO LIVER
     Dosage: 140 MG, QD
     Route: 048
     Dates: start: 20160326, end: 20160420

REACTIONS (8)
  - Kidney infection [Unknown]
  - Urinary tract infection [Unknown]
  - Wound dehiscence [Unknown]
  - Stomatitis [Unknown]
  - Decreased appetite [Unknown]
  - Decubitus ulcer [Unknown]
  - Fatigue [Unknown]
  - Off label use [Unknown]
